FAERS Safety Report 5629109-1 (Version None)
Quarter: 2008Q1

REPORT INFORMATION
  Report Type: 
  Country: None (occurrence: None)
  Receive Date: 20080216
  Receipt Date: 20080104
  Transmission Date: 20080703
  Serious: No
  Sender: FDA-Public Use
  Company Number: US-BAXTER-2008BH000435

PATIENT

DRUGS (2)
  1. HEPARIN SODIUM [Suspect]
     Indication: PROPHYLAXIS
     Route: 010
     Dates: start: 20071201, end: 20071201
  2. HEPARIN SODIUM [Suspect]
     Route: 010
     Dates: start: 20071201, end: 20071201

REACTIONS (5)
  - ABDOMINAL PAIN [None]
  - CHEST PAIN [None]
  - FLUSHING [None]
  - HYPOTENSION [None]
  - PARAESTHESIA ORAL [None]
